FAERS Safety Report 7323194-7 (Version None)
Quarter: 2011Q1

REPORT INFORMATION
  Report Type: 
  Country: None (occurrence: None)
  Receive Date: 20110301
  Receipt Date: 20110214
  Transmission Date: 20110831
  Serious: Yes (Death, Life-Threatening, Hospitalization)
  Sender: FDA-Public Use
  Company Number: FR-TYCO HEALTHCARE/MALLINCKRODT-T201002420

PATIENT
  Sex: Male
  Weight: 100 kg

DRUGS (10)
  1. CARBAMAZEPINE [Concomitant]
     Indication: PRODUCT USED FOR UNKNOWN INDICATION
     Dosage: 400 MG, UNK
     Route: 065
  2. KEPPRA [Suspect]
     Indication: EPILEPSY
     Dosage: UNK
     Route: 065
  3. PERINDOPRIL ERBUMINE [Concomitant]
     Indication: PRODUCT USED FOR UNKNOWN INDICATION
     Dosage: UNK MG, UNK
  4. ENANTONE                           /00726901/ [Concomitant]
     Indication: PRODUCT USED FOR UNKNOWN INDICATION
     Dosage: UNK
     Route: 065
  5. KARDEGIC                           /00002703/ [Concomitant]
     Indication: PRODUCT USED FOR UNKNOWN INDICATION
     Dosage: 160 MG, UNK
     Route: 065
  6. OPTIJECT [Suspect]
     Indication: ANGIOGRAM
     Dosage: 70 ML, SINGLE
     Route: 042
     Dates: start: 20101209, end: 20101209
  7. ALEPSAL [Concomitant]
     Indication: PRODUCT USED FOR UNKNOWN INDICATION
     Dosage: 100 MG, UNK
  8. VALIUM [Suspect]
     Indication: EPILEPSY
     Dosage: UNK
     Route: 065
  9. PERINDOPRIL ERBUMINE [Concomitant]
     Dosage: 4 MG, UNK
  10. PANTOPRAZOLE [Concomitant]
     Indication: PRODUCT USED FOR UNKNOWN INDICATION
     Dosage: 20 MG, UNK
     Route: 065

REACTIONS (2)
  - ANAPHYLACTIC SHOCK [None]
  - CARDIAC ARREST [None]
